FAERS Safety Report 6819068 (Version 2)
Quarter: 2014Q3

REPORT INFORMATION
  Report Type: Spontaneous
  Country: US (occurrence: None)
  Receive Date: 20081112
  Receipt Date: 20140701
  Transmission Date: 20150326
  Serious: Yes (Other)
  Sender: FDA-Public Use
  Company Number: 2008S1010823

PATIENT
  Age: 66 Year
  Sex: Female
  Weight: 79 kg

DRUGS (5)
  1. ATENOLOL (ATENOLOL) [Concomitant]
     Active Substance: ATENOLOL
  2. PHOSPHO-SODA [Suspect]
     Active Substance: SODIUM PHOSPHATE, DIBASIC\SODIUM PHOSPHATE, MONOBASIC
     Indication: COLONOSCOPY
     Dosage: 2 IN 1 DAYS, ORAL
     Route: 048
     Dates: start: 20051208, end: 20051209
  3. COUMADIN [Concomitant]
     Active Substance: WARFARIN SODIUM
  4. PRINIVIL (LISINOPRIL DIHYDRATE) [Concomitant]
  5. HYDROCHLOROTHIAZIDE (HYDROCHLOROTHIAZIDE) [Concomitant]
     Active Substance: HYDROCHLOROTHIAZIDE

REACTIONS (3)
  - Renal failure [None]
  - Acute phosphate nephropathy [None]
  - Nephrocalcinosis [None]

NARRATIVE: CASE EVENT DATE: 20060905
